FAERS Safety Report 9781763 (Version 5)
Quarter: 2014Q1

REPORT INFORMATION
  Report Type: Spontaneous
  Country: JP (occurrence: JP)
  Receive Date: 20131225
  Receipt Date: 20140326
  Transmission Date: 20141002
  Serious: Yes (Death, Hospitalization)
  Sender: FDA-Public Use
  Company Number: JP-ROCHE-1315635

PATIENT
  Age: 68 Year
  Sex: Male
  Weight: 46 kg

DRUGS (3)
  1. XELODA [Suspect]
     Indication: RECTAL CANCER
     Dosage: MOST RECENT DOSE WAS ON 29/NOV/2013
     Route: 048
     Dates: start: 20131115, end: 20131129
  2. AMLODIPINE [Concomitant]
     Indication: HYPERTENSION
     Route: 048
     Dates: end: 20131130
  3. DIOVAN [Concomitant]
     Indication: HYPERTENSION
     Route: 048

REACTIONS (10)
  - Neutrophil count decreased [Recovered/Resolved]
  - Platelet count decreased [Recovered/Resolved]
  - Gastrointestinal haemorrhage [Recovered/Resolved]
  - Stomatitis [Recovered/Resolved]
  - Ileus [Not Recovered/Not Resolved]
  - Septic shock [Recovering/Resolving]
  - Pulmonary oedema [Recovered/Resolved]
  - Off label use [Unknown]
  - Peritonitis [Fatal]
  - Disseminated intravascular coagulation [Fatal]
